FAERS Safety Report 20306721 (Version 10)
Quarter: 2022Q1

REPORT INFORMATION
  Report Type: Spontaneous
  Country: CA (occurrence: CA)
  Receive Date: 20220106
  Receipt Date: 20220324
  Transmission Date: 20220423
  Serious: Yes (Hospitalization, Other)
  Sender: FDA-Public Use
  Company Number: CA-CELLTRION INC.-2021CA018001

PATIENT

DRUGS (9)
  1. INFLECTRA [Suspect]
     Active Substance: INFLIXIMAB-DYYB
     Indication: Crohn^s disease
     Dosage: 400 MG INDUCTION AT WEEK 0, 2, 6 THEN EVERY 4 WEEKS
     Route: 042
     Dates: start: 20211210, end: 20211210
  2. INFLECTRA [Suspect]
     Active Substance: INFLIXIMAB-DYYB
     Dosage: 400 MG INDUCTION AT WEEK 0, 2, 6 THEN EVERY 4 WEEKS, NOT YET STARTED
     Route: 042
  3. INFLECTRA [Suspect]
     Active Substance: INFLIXIMAB-DYYB
     Dosage: 400 MG INDUCTION AT WEEK 0, 2, 6 THEN EVERY 4 WEEKS
     Route: 042
     Dates: start: 20220311
  4. AMPHETAMINE [Concomitant]
     Active Substance: AMPHETAMINE
     Indication: Dependence
     Dosage: UNK
  5. FENTANYL [Concomitant]
     Active Substance: FENTANYL
     Indication: Dependence
     Dosage: 1 DF
     Route: 065
  6. HEROIN [Concomitant]
     Active Substance: DIAMORPHINE
     Indication: Dependence
     Dosage: 1 DF
     Route: 065
  7. PENTASA [Concomitant]
     Active Substance: MESALAMINE
     Dosage: 1 DF
     Route: 065
  8. UNSPECIFIED INGREDIENT [Concomitant]
     Active Substance: UNSPECIFIED INGREDIENT
     Indication: Dependence
     Dosage: 1 DF
  9. PREDNISONE [Concomitant]
     Active Substance: PREDNISONE
     Dosage: UNK

REACTIONS (7)
  - Cellulitis [Recovered/Resolved]
  - Infection reactivation [Not Recovered/Not Resolved]
  - Off label use [Unknown]
  - Off label use [Unknown]
  - Inappropriate schedule of product administration [Unknown]
  - Abdominal discomfort [Not Recovered/Not Resolved]
  - Localised infection [Unknown]

NARRATIVE: CASE EVENT DATE: 20211201
